FAERS Safety Report 4860127-7 (Version None)
Quarter: 2005Q4

REPORT INFORMATION
  Report Type: 
  Country: None (occurrence: None)
  Receive Date: 20051219
  Receipt Date: 20050928
  Transmission Date: 20060501
  Serious: Yes (Hospitalization, Disabling)
  Sender: FDA-Public Use
  Company Number: US-MERCK-0509USA04903

PATIENT
  Age: 67 Year
  Sex: Male
  Weight: 90 kg

DRUGS (3)
  1. VIOXX [Suspect]
     Indication: ARTHRITIS
     Route: 048
     Dates: start: 19991001, end: 20040901
  2. XANAX [Concomitant]
     Route: 065
  3. ZOLOFT [Concomitant]
     Route: 065

REACTIONS (21)
  - ACUTE MYOCARDIAL INFARCTION [None]
  - CAROTID BRUIT [None]
  - CATARACT [None]
  - CERUMEN IMPACTION [None]
  - CORONARY ARTERY DISEASE [None]
  - DEAFNESS [None]
  - DIVERTICULUM [None]
  - ERECTILE DYSFUNCTION [None]
  - FIBROSIS [None]
  - HYPERCHOLESTEROLAEMIA [None]
  - HYPERLIPIDAEMIA [None]
  - LABYRINTHITIS [None]
  - LUMBAR SPINAL STENOSIS [None]
  - MUSCULOSKELETAL CHEST PAIN [None]
  - MYRINGOTOMY [None]
  - NEPHROLITHIASIS [None]
  - OSTEOARTHRITIS [None]
  - OTITIS MEDIA CHRONIC [None]
  - ROTATOR CUFF SYNDROME [None]
  - TYMPANIC MEMBRANE PERFORATION [None]
  - WEIGHT DECREASED [None]
